FAERS Safety Report 14525619 (Version 8)
Quarter: 2021Q1

REPORT INFORMATION
  Report Type: Spontaneous
  Country: US (occurrence: US)
  Receive Date: 20180213
  Receipt Date: 20210114
  Transmission Date: 20210419
  Serious: Yes (Other)
  Sender: FDA-Public Use
  Company Number: US-PFIZER INC-2018061688

PATIENT
  Age: 69 Year
  Sex: Female
  Weight: 121.5 kg

DRUGS (7)
  1. CELEBREX [Suspect]
     Active Substance: CELECOXIB
     Indication: OSTEOPOROSIS
     Dosage: UNK UNK, ALTERNATE DAY (TOOK IT EVERY OTHER DAY)
     Route: 048
  2. CELEBREX [Suspect]
     Active Substance: CELECOXIB
     Dosage: 200 MG, 1X/DAY
     Route: 048
  3. CYMBALTA [Concomitant]
     Active Substance: DULOXETINE HYDROCHLORIDE
     Indication: FIBROMYALGIA
     Dosage: 60 MG
  4. GABAPENTIN. [Concomitant]
     Active Substance: GABAPENTIN
     Indication: FIBROMYALGIA
     Dosage: 300 MG
  5. CELEBREX [Suspect]
     Active Substance: CELECOXIB
     Indication: OSTEOARTHRITIS
     Dosage: UNK, DAILY
  6. CELEBREX [Suspect]
     Active Substance: CELECOXIB
     Indication: ARTHRITIS
     Dosage: UNK, ALTERNATE DAY (TRIED TAKING IT EVERY OTHER DAY THIS WEEK)
     Dates: start: 20180204
  7. CELEBREX [Suspect]
     Active Substance: CELECOXIB
     Dosage: 200 MG, RESUMED BACK TO DAILY
     Route: 048

REACTIONS (9)
  - Feeling abnormal [Unknown]
  - Intentional product misuse [Unknown]
  - Spinal osteoarthritis [Unknown]
  - Product use issue [Unknown]
  - Product dose omission issue [Unknown]
  - Hypoaesthesia [Unknown]
  - Sensitivity to weather change [Unknown]
  - Cataract [Unknown]
  - Off label use [Unknown]

NARRATIVE: CASE EVENT DATE: 20180204
